FAERS Safety Report 23233251 (Version 1)
Quarter: 2023Q4

REPORT INFORMATION
  Report Type: Spontaneous
  Country: PH (occurrence: US)
  Receive Date: 20231128
  Receipt Date: 20231128
  Transmission Date: 20240110
  Serious: No
  Sender: FDA-Public Use
  Company Number: PH-AMX-006342

PATIENT
  Age: 53 Year
  Sex: Female
  Weight: 56.81 kg

DRUGS (2)
  1. RELYVRIO [Suspect]
     Active Substance: SODIUM PHENYLBUTYRATE\TAURURSODIOL
     Indication: Amyotrophic lateral sclerosis
     Route: 048
  2. RADICAVA [Suspect]
     Active Substance: EDARAVONE
     Indication: Amyotrophic lateral sclerosis
     Dosage: 5 MILLILITER QD FOR 14 DAYS AND THEN GOES 14 DAYS OFF WITHOUT TAKING THE PRODUCT
     Route: 048
     Dates: start: 20231022

REACTIONS (1)
  - Dizziness [Not Recovered/Not Resolved]
